FAERS Safety Report 8964752 (Version 1)
Quarter: 2012Q4

REPORT INFORMATION
  Report Type: 
  Country: US (occurrence: US)
  Receive Date: 20121213
  Receipt Date: 20121213
  Transmission Date: 20130627
  Serious: Yes (Other)
  Sender: FDA-Public Use
  Company Number: US-ROCHE-1168094

PATIENT
  Age: 27 Year
  Sex: Female

DRUGS (1)
  1. BEVACIZUMAB [Suspect]
     Indication: RETINAL NEOVASCULARISATION
     Route: 050

REACTIONS (1)
  - Retinal vein occlusion [Unknown]
